FAERS Safety Report 4289008-7 (Version None)
Quarter: 2004Q1

REPORT INFORMATION
  Report Type: 
  Country: None (occurrence: None)
  Receive Date: 20040203
  Receipt Date: 20031024
  Transmission Date: 20041129
  Serious: No
  Sender: FDA-Public Use
  Company Number: 03P-163-0238817-00

PATIENT
  Age: 23 Year
  Sex: Male

DRUGS (1)
  1. DILAUDID [Suspect]
     Dosage: INTRAVENOUS
     Route: 042
     Dates: start: 20030101

REACTIONS (3)
  - INADEQUATE ANALGESIA [None]
  - OVERDOSE [None]
  - SEDATION [None]
